FAERS Safety Report 7794075-X (Version None)
Quarter: 2011Q4

REPORT INFORMATION
  Report Type: 
  Country: None (occurrence: None)
  Receive Date: 20111004
  Receipt Date: 20110923
  Transmission Date: 20120403
  Serious: Yes (Hospitalization)
  Sender: FDA-Public Use
  Company Number: CA-JNJFOC-20110802771

PATIENT
  Sex: Male
  Weight: 92.4 kg

DRUGS (5)
  1. REMICADE [Suspect]
     Indication: CROHN'S DISEASE
     Route: 042
     Dates: start: 20110622
  2. COLESTID [Concomitant]
     Dosage: PRN
     Route: 065
  3. ATIVAN [Concomitant]
     Dosage: PRN
     Route: 065
  4. VALACYCLOVIR [Concomitant]
     Route: 065
  5. ASACOL [Concomitant]
     Route: 065

REACTIONS (4)
  - FOLLICULITIS [None]
  - CLOSTRIDIAL INFECTION [None]
  - PHARYNGITIS [None]
  - SINUSITIS [None]
